FAERS Safety Report 9894718 (Version 3)
Quarter: 2014Q2

REPORT INFORMATION
  Report Type: Spontaneous
  Country: US (occurrence: US)
  Receive Date: 20140213
  Receipt Date: 20140401
  Transmission Date: 20141212
  Serious: Yes (Other)
  Sender: FDA-Public Use
  Company Number: US-009507513-1402USA001893

PATIENT
  Age: 26 Year
  Sex: Female
  Weight: 73.47 kg

DRUGS (2)
  1. IMPLANON [Suspect]
     Indication: CONTRACEPTION
     Dosage: UNK
     Route: 059
     Dates: start: 20110125, end: 20140203
  2. NEXPLANON [Concomitant]
     Dosage: UNK
     Route: 059
     Dates: start: 20140203

REACTIONS (6)
  - Skin operation [Unknown]
  - Skin operation [Unknown]
  - Weight decreased [Unknown]
  - Device breakage [Unknown]
  - Device kink [Unknown]
  - Incorrect drug administration duration [Unknown]
